FAERS Safety Report 5347326-5 (Version None)
Quarter: 2007Q2

REPORT INFORMATION
  Report Type: 
  Country: None (occurrence: None)
  Receive Date: 20070507
  Receipt Date: 20070212
  Transmission Date: 20071010
  Serious: Yes (Hospitalization, Other)
  Sender: FDA-Public Use
  Company Number: 34397

PATIENT
  Age: 46 Year
  Sex: Male

DRUGS (1)
  1. ADRIAMYCIN PFS [Suspect]
     Indication: NEOPLASM MALIGNANT
     Dates: start: 20070112

REACTIONS (1)
  - FEBRILE NEUTROPENIA [None]
